FAERS Safety Report 17507335 (Version 19)
Quarter: 2022Q2

REPORT INFORMATION
  Report Type: Report from Study
  Country: US (occurrence: US)
  Receive Date: 20200306
  Receipt Date: 20220630
  Transmission Date: 20220721
  Serious: Yes (Hospitalization, Other)
  Sender: FDA-Public Use
  Company Number: US-SHIRE-US202008495

PATIENT
  Age: 65 Year
  Sex: Female
  Weight: 120 kg

DRUGS (15)
  1. HUMAN IMMUNOGLOBULIN G [Suspect]
     Active Substance: HUMAN IMMUNOGLOBULIN G
     Indication: Immunodeficiency common variable
     Dosage: 24 GRAM, Q2WEEKS
     Route: 058
     Dates: start: 20171207
  2. HUMAN IMMUNOGLOBULIN G [Suspect]
     Active Substance: HUMAN IMMUNOGLOBULIN G
     Indication: Primary immunodeficiency syndrome
     Dosage: 8 GRAM
     Route: 058
     Dates: start: 20171207
  3. HUMAN IMMUNOGLOBULIN G [Suspect]
     Active Substance: HUMAN IMMUNOGLOBULIN G
     Dosage: 24 GRAM
     Route: 058
     Dates: start: 20171207
  4. HUMAN IMMUNOGLOBULIN G [Suspect]
     Active Substance: HUMAN IMMUNOGLOBULIN G
     Dosage: 24 GRAM, Q2WEEKS
     Route: 058
     Dates: start: 20180604
  5. HUMAN IMMUNOGLOBULIN G [Suspect]
     Active Substance: HUMAN IMMUNOGLOBULIN G
     Dosage: 24 GRAM, Q2WEEK
     Route: 058
     Dates: start: 20180605
  6. XARELTO [Concomitant]
     Active Substance: RIVAROXABAN
     Route: 065
  7. DIPHENHYDRAMINE [Concomitant]
     Active Substance: DIPHENHYDRAMINE
     Route: 065
  8. EPINEPHRINE [Concomitant]
     Active Substance: EPINEPHRINE
     Route: 065
  9. METHYL B 12 [Concomitant]
     Route: 065
  10. PREDNISONE [Concomitant]
     Active Substance: PREDNISONE
     Route: 065
  11. VENTOLIN [Concomitant]
     Active Substance: ALBUTEROL SULFATE
     Route: 065
  12. SULFASALAZINE [Concomitant]
     Active Substance: SULFASALAZINE
     Route: 065
  13. VALACYCLOVIR [Concomitant]
     Active Substance: VALACYCLOVIR HYDROCHLORIDE
     Route: 065
  14. GASTROPOM APO [Concomitant]
     Route: 065
  15. ALBUTEROL SULFATE [Concomitant]
     Active Substance: ALBUTEROL SULFATE
     Route: 065

REACTIONS (32)
  - Cardiac failure acute [Unknown]
  - Dyspnoea [Unknown]
  - Cardiac infection [Unknown]
  - Osteomyelitis [Unknown]
  - Pneumonia [Unknown]
  - Carditis [Unknown]
  - Hepatitis [Unknown]
  - Pulmonary oedema [Unknown]
  - Pericardial effusion [Unknown]
  - Joint dislocation [Unknown]
  - Sinusitis [Unknown]
  - Skin infection [Unknown]
  - Bronchitis [Recovering/Resolving]
  - Tooth abscess [Not Recovered/Not Resolved]
  - Dental caries [Unknown]
  - Tooth infection [Unknown]
  - Musculoskeletal stiffness [Unknown]
  - Back pain [Unknown]
  - Arthralgia [Unknown]
  - Myalgia [Not Recovered/Not Resolved]
  - Pain [Not Recovered/Not Resolved]
  - Gait disturbance [Unknown]
  - Asthenia [Unknown]
  - Muscle fatigue [Unknown]
  - Weight increased [Unknown]
  - Tachycardia [Unknown]
  - Memory impairment [Unknown]
  - Product dose omission issue [Unknown]
  - Adverse drug reaction [Unknown]
  - Therapy interrupted [Not Recovered/Not Resolved]
  - Oedema [Unknown]
  - COVID-19 [Unknown]

NARRATIVE: CASE EVENT DATE: 20210201
